FAERS Safety Report 7308672-9 (Version None)
Quarter: 2011Q1

REPORT INFORMATION
  Report Type: 
  Country: None (occurrence: None)
  Receive Date: 20110223
  Receipt Date: 20110209
  Transmission Date: 20110831
  Serious: Yes (Hospitalization, Other)
  Sender: FDA-Public Use
  Company Number: PHHY2011US10774

PATIENT
  Sex: Female

DRUGS (14)
  1. FEMARA [Suspect]
     Dosage: 2.5 MG, UNK
  2. CARVEDILOL [Concomitant]
  3. XALATAN [Concomitant]
  4. VYTORIN [Concomitant]
  5. GLUCOTROL [Concomitant]
  6. TORSEMIDE [Concomitant]
  7. LANTUS [Concomitant]
  8. CITALOPRAM [Concomitant]
  9. MIRAPEX [Concomitant]
  10. AUGMENTIN '125' [Concomitant]
  11. POTASSIUM [Concomitant]
  12. LEVOTHYROXINE SODIUM [Concomitant]
  13. DIGOXIN [Concomitant]
  14. ALLOPURINOL [Concomitant]

REACTIONS (4)
  - ULCER HAEMORRHAGE [None]
  - FALL [None]
  - SPINAL COMPRESSION FRACTURE [None]
  - BACK PAIN [None]
